FAERS Safety Report 8964485 (Version 1)
Quarter: 2012Q4

REPORT INFORMATION
  Report Type: Report from Study
  Country: BE (occurrence: BE)
  Receive Date: 20121214
  Receipt Date: 20121214
  Transmission Date: 20130627
  Serious: Yes (Hospitalization)
  Sender: FDA-Public Use
  Company Number: BE-ELI_LILLY_AND_COMPANY-BE201211001045

PATIENT
  Age: 81 Year
  Sex: Male
  Weight: 95 kg

DRUGS (8)
  1. UNSPECIFIED INGREDIENT [Suspect]
     Indication: ACUTE MYOCARDIAL INFARCTION
     Dosage: UNK, single
     Route: 048
     Dates: start: 20121031, end: 20121031
  2. PRASUGREL HYDROCHLORIDE [Suspect]
     Indication: ACUTE MYOCARDIAL INFARCTION
     Dosage: 60 mg, single
     Route: 048
     Dates: start: 20121031, end: 20121031
  3. PRASUGREL HYDROCHLORIDE [Suspect]
     Indication: ACUTE MYOCARDIAL INFARCTION
     Dosage: 5 mg, qd
     Route: 048
     Dates: start: 20121101, end: 20121106
  4. ASAFLOW [Concomitant]
     Indication: CORONARY ARTERY DISEASE
     Dosage: UNK
     Dates: start: 20121031
  5. ARIXTRA [Concomitant]
     Dosage: UNK
     Dates: start: 20121031, end: 20121102
  6. TRITACE [Concomitant]
     Indication: HYPERTENSION
     Dosage: UNK
     Dates: start: 20121101
  7. LIPITOR [Concomitant]
     Indication: HYPERLIPIDAEMIA
     Dosage: UNK
     Dates: start: 20121031
  8. ASPEGIC [Concomitant]
     Indication: CORONARY ARTERY DISEASE
     Dosage: UNK
     Dates: start: 20121030, end: 20121030

REACTIONS (1)
  - Acute generalised exanthematous pustulosis [Recovering/Resolving]
